FAERS Safety Report 14954610 (Version 1)
Quarter: 2018Q2

REPORT INFORMATION
  Report Type: Spontaneous
  Country: US (occurrence: US)
  Receive Date: 20180530
  Receipt Date: 20180530
  Transmission Date: 20180711
  Serious: Yes (Death)
  Sender: FDA-Public Use
  Company Number: US-VIFOR (INTERNATIONAL) INC.-VIT-2018-04952

PATIENT
  Age: 87 Year
  Sex: Male

DRUGS (18)
  1. COLACE [Concomitant]
     Active Substance: DOCUSATE SODIUM
  2. ERGOCALCIFEROL. [Concomitant]
     Active Substance: ERGOCALCIFEROL
  3. VELTASSA [Suspect]
     Active Substance: PATIROMER
     Indication: HYPERKALAEMIA
     Route: 048
     Dates: start: 20180215
  4. ENZYME COQ10 [Concomitant]
  5. BUMEX [Concomitant]
     Active Substance: BUMETANIDE
  6. VITAMINS NOS [Concomitant]
     Active Substance: VITAMINS
  7. PROSCAR [Concomitant]
     Active Substance: FINASTERIDE
  8. TOPROL XL [Concomitant]
     Active Substance: METOPROLOL SUCCINATE
  9. FLOVENT [Concomitant]
     Active Substance: FLUTICASONE PROPIONATE
  10. MYRBETRIQ [Concomitant]
     Active Substance: MIRABEGRON
  11. PAXIL [Concomitant]
     Active Substance: PAROXETINE HYDROCHLORIDE
  12. DUONEB [Concomitant]
     Active Substance: ALBUTEROL SULFATE\IPRATROPIUM BROMIDE
  13. FERROUS GLUCONATE [Concomitant]
     Active Substance: FERROUS GLUCONATE
  14. ULTRAM [Concomitant]
     Active Substance: TRAMADOL HYDROCHLORIDE
  15. ACETYLSALICYLIC ACID [Concomitant]
     Active Substance: ASPIRIN
  16. ATROVENT INHALER [Concomitant]
  17. KLONOPIN [Concomitant]
     Active Substance: CLONAZEPAM
  18. RESTORIL [Concomitant]
     Active Substance: TEMAZEPAM

REACTIONS (1)
  - Death [Fatal]

NARRATIVE: CASE EVENT DATE: 2018
